FAERS Safety Report 17505675 (Version 1)
Quarter: 2020Q1

REPORT INFORMATION
  Report Type: Spontaneous
  Country: DE (occurrence: DE)
  Receive Date: 20200306
  Receipt Date: 20200306
  Transmission Date: 20200409
  Serious: Yes (Hospitalization)
  Sender: FDA-Public Use
  Company Number: DE-US-PROVELL PHARMACEUTICALS LLC-E2B_90075522

PATIENT
  Sex: Female

DRUGS (2)
  1. EUTHYROX [Suspect]
     Active Substance: LEVOTHYROXINE SODIUM
     Indication: AUTOIMMUNE THYROIDITIS
     Dosage: NEW FORMULATION
  2. EUTHYROX [Suspect]
     Active Substance: LEVOTHYROXINE SODIUM
     Dosage: -NOV/DEC 2019

REACTIONS (3)
  - Palpitations [Not Recovered/Not Resolved]
  - Cardiac disorder [Unknown]
  - Hypertension [Unknown]

NARRATIVE: CASE EVENT DATE: 2019
